FAERS Safety Report 19349513 (Version 1)
Quarter: 2021Q2

REPORT INFORMATION
  Report Type: Spontaneous
  Country: US (occurrence: US)
  Receive Date: 20210531
  Receipt Date: 20210531
  Transmission Date: 20210717
  Serious: Yes (Other)
  Sender: FDA-Public Use
  Company Number: US-CIPLA LTD.-2021US03834

PATIENT

DRUGS (1)
  1. BUPROPION. [Suspect]
     Active Substance: BUPROPION
     Dosage: 30 TABLETS OF 300 MILLIGRAM (9000 MILLIGRAM)
     Route: 065

REACTIONS (6)
  - Electrocardiogram QT prolonged [Recovered/Resolved]
  - Overdose [Unknown]
  - Sinus tachycardia [Recovering/Resolving]
  - Seizure [Recovering/Resolving]
  - Cardiogenic shock [Recovering/Resolving]
  - Cardiotoxicity [Recovering/Resolving]
